FAERS Safety Report 4511891-8 (Version None)
Quarter: 2004Q4

REPORT INFORMATION
  Report Type: 
  Country: None (occurrence: None)
  Receive Date: 20041123
  Receipt Date: 20041112
  Transmission Date: 20050328
  Serious: Yes (Other)
  Sender: FDA-Public Use
  Company Number: 2004-00526

PATIENT
  Age: 40 Year
  Sex: Male

DRUGS (2)
  1. VELCADE [Suspect]
     Indication: MULTIPLE MYELOMA
     Dosage: 2.50 MG, IV BOLUS
     Route: 040
     Dates: start: 20040606, end: 20040831
  2. ZOMETA [Concomitant]

REACTIONS (4)
  - MONOCYTE PERCENTAGE INCREASED [None]
  - VASCULAR PURPURA [None]
  - VASCULITIS [None]
  - WHITE BLOOD CELL COUNT DECREASED [None]
